FAERS Safety Report 5504977-2 (Version None)
Quarter: 2007Q4

REPORT INFORMATION
  Report Type: 
  Country: None (occurrence: None)
  Receive Date: 20071031
  Receipt Date: 20071016
  Transmission Date: 20080405
  Serious: Yes (Hospitalization, Other)
  Sender: FDA-Public Use
  Company Number: 2007BI022358

PATIENT
  Age: 62 Year
  Sex: Female

DRUGS (1)
  1. NATALIZUMAB [Suspect]
     Indication: MULTIPLE SCLEROSIS
     Dosage: IV
     Route: 042
     Dates: start: 20070827, end: 20070827

REACTIONS (6)
  - CONDITION AGGRAVATED [None]
  - FEELING COLD [None]
  - HYPOAESTHESIA FACIAL [None]
  - NIGHT SWEATS [None]
  - ORAL CANDIDIASIS [None]
  - TRIGEMINAL NEURALGIA [None]
